FAERS Safety Report 10729102 (Version 1)
Quarter: 2015Q1

REPORT INFORMATION
  Report Type: Spontaneous
  Country: NL (occurrence: NL)
  Receive Date: 20150122
  Receipt Date: 20150122
  Transmission Date: 20150721
  Serious: Yes (Other)
  Sender: FDA-Public Use
  Company Number: NL-GLAXOSMITHKLINE-NL2015GSK004556

PATIENT
  Age: 32 Year
  Sex: Female

DRUGS (3)
  1. FLUOXETINE [Concomitant]
     Active Substance: FLUOXETINE\FLUOXETINE HYDROCHLORIDE
     Dosage: 20 MG, QD
     Dates: start: 201210
  2. DEXAMFETAMINE [Concomitant]
     Active Substance: DEXTROAMPHETAMINE
  3. WELLBUTRIN XL [Suspect]
     Active Substance: BUPROPION HYDROCHLORIDE
     Indication: MOOD ALTERED
     Dosage: 300 MG, QD
     Dates: start: 20140827, end: 20140930

REACTIONS (1)
  - Intentional self-injury [Recovered/Resolved with Sequelae]

NARRATIVE: CASE EVENT DATE: 20140923
